FAERS Safety Report 5266691-0 (Version None)
Quarter: 2007Q1

REPORT INFORMATION
  Report Type: 
  Country: None (occurrence: None)
  Receive Date: 20070312
  Receipt Date: 20070226
  Transmission Date: 20070707
  Serious: Yes (Hospitalization)
  Sender: FDA-Public Use
  Company Number: 2007-155107-NL

PATIENT
  Age: 28 Year
  Sex: Female

DRUGS (10)
  1. FOLITROPIN BETA [Suspect]
     Indication: OVULATION INDUCTION
     Dosage: SEE IMAGE
     Route: 058
     Dates: start: 20070112, end: 20070118
  2. FOLITROPIN BETA [Suspect]
     Indication: OVULATION INDUCTION
     Dosage: SEE IMAGE
     Route: 058
     Dates: start: 20070119, end: 20070119
  3. CHORONIC GONADOTROPHIN [Suspect]
     Indication: OVULATION INDUCTION
     Dosage: 10000 IU ONCE, SUBCUTANEOUS
     Route: 058
     Dates: start: 20070119, end: 20070119
  4. GANIRELIX ACETATE INJECTION [Concomitant]
  5. PROGESTERONE [Concomitant]
  6. ATROPINE SULFATE [Concomitant]
  7. MIDAZOLAM HCL [Concomitant]
  8. PROPOFOL [Concomitant]
  9. SUFENTANIL CITRATE [Concomitant]
  10. ACETAMINOPHEN [Concomitant]

REACTIONS (2)
  - OVARIAN TORSION [None]
  - PREGNANCY TEST POSITIVE [None]
